FAERS Safety Report 15591664 (Version 1)
Quarter: 2018Q4

REPORT INFORMATION
  Report Type: Spontaneous
  Country: US (occurrence: US)
  Receive Date: 20181106
  Receipt Date: 20181106
  Transmission Date: 20190205
  Serious: Yes (Hospitalization)
  Sender: FDA-Public Use
  Company Number: US-JNJFOC-20181101751

PATIENT
  Age: 54 Year
  Sex: Male
  Weight: 107.5 kg

DRUGS (1)
  1. INVOKANA [Suspect]
     Active Substance: CANAGLIFLOZIN
     Indication: PRODUCT USED FOR UNKNOWN INDICATION
     Route: 048

REACTIONS (4)
  - Limb amputation [Unknown]
  - Diabetic foot infection [Unknown]
  - Osteomyelitis [Unknown]
  - Impaired healing [Unknown]

NARRATIVE: CASE EVENT DATE: 201508
